FAERS Safety Report 14462426 (Version 1)
Quarter: 2018Q1

REPORT INFORMATION
  Report Type: Report from Study
  Country: NL (occurrence: NL)
  Receive Date: 20180130
  Receipt Date: 20180130
  Transmission Date: 20180509
  Serious: Yes (Hospitalization)
  Sender: FDA-Public Use
  Company Number: NL-GILEAD-2018-0318016

PATIENT
  Age: 73 Year
  Sex: Female

DRUGS (1)
  1. AZTREONAM LYSINE [Suspect]
     Active Substance: AZTREONAM LYSINE
     Indication: PSEUDOMONAS INFECTION
     Dosage: 1 DF, TID
     Route: 055
     Dates: start: 20180113, end: 201801

REACTIONS (2)
  - Ill-defined disorder [Unknown]
  - Rash [Unknown]

NARRATIVE: CASE EVENT DATE: 201801
